FAERS Safety Report 20790498 (Version 1)
Quarter: 2022Q2

REPORT INFORMATION
  Report Type: Spontaneous
  Country: HR (occurrence: HR)
  Receive Date: 20220505
  Receipt Date: 20220505
  Transmission Date: 20220721
  Serious: Yes (Other)
  Sender: FDA-Public Use
  Company Number: None

PATIENT
  Age: 14 Year
  Sex: Female

DRUGS (3)
  1. QUETIAPINE [Suspect]
     Active Substance: QUETIAPINE
     Dosage: UNIT DOSE 2500MG, FREQUENCY TIME 1 DAYS
     Route: 048
     Dates: start: 20220301, end: 20220301
  2. RIVOTRIL [Suspect]
     Active Substance: CLONAZEPAM
     Dosage: UNIT DOSE 25MG, FREQUENCY TIME 1 DAYS
     Route: 048
     Dates: start: 20220301, end: 20220301
  3. DIAZEPAM [Suspect]
     Active Substance: DIAZEPAM
     Dosage: UNIT DOSE 30MG,FREQUENCY TIME 1 DAYS
     Route: 048
     Dates: start: 20220301, end: 20220301

REACTIONS (2)
  - Intentional overdose [Unknown]
  - Suicide attempt [Unknown]

NARRATIVE: CASE EVENT DATE: 20220301
